FAERS Safety Report 6306113-1 (Version None)
Quarter: 2009Q3

REPORT INFORMATION
  Report Type: 
  Country: None (occurrence: None)
  Receive Date: 20090810
  Receipt Date: 20090810
  Transmission Date: 20100115
  Serious: Yes (Life-Threatening, Other)
  Sender: FDA-Public Use
  Company Number: None

PATIENT
  Age: 48 Year
  Sex: Female
  Weight: 77.1115 kg

DRUGS (2)
  1. XANAX [Suspect]
  2. ZOLOFT [Suspect]

REACTIONS (10)
  - ACTIVITIES OF DAILY LIVING IMPAIRED [None]
  - ANXIETY [None]
  - DRUG INTERACTION [None]
  - DYSARTHRIA [None]
  - DYSPHEMIA [None]
  - FALL [None]
  - HYPERSOMNIA [None]
  - OVERDOSE [None]
  - RESTLESSNESS [None]
  - SPEECH DISORDER [None]
